FAERS Safety Report 23764866 (Version 1)
Quarter: 2024Q2

REPORT INFORMATION
  Report Type: Report from Study
  Country: IT (occurrence: IT)
  Receive Date: 20240420
  Receipt Date: 20240420
  Transmission Date: 20240716
  Serious: Yes (Hospitalization)
  Sender: FDA-Public Use
  Company Number: IT-ABBVIE-5724496

PATIENT
  Age: 71 Year
  Sex: Male

DRUGS (2)
  1. CARBIDOPA\LEVODOPA [Suspect]
     Active Substance: CARBIDOPA\LEVODOPA
     Indication: Parkinson^s disease
     Dosage: DAILY DOSE (MG/DAY): 1280; PUMP SETTING: MD: 8ML+3ML; CR: 4,3ML/H (16H); ED: 1,5ML
     Route: 050
     Dates: start: 20200909
  2. CARBIDOPA\LEVODOPA [Suspect]
     Active Substance: CARBIDOPA\LEVODOPA

REACTIONS (1)
  - Femur fracture [Recovering/Resolving]

NARRATIVE: CASE EVENT DATE: 20240401
